FAERS Safety Report 6335227-5 (Version None)
Quarter: 2009Q3

REPORT INFORMATION
  Report Type: 
  Country: None (occurrence: None)
  Receive Date: 20090831
  Receipt Date: 20090826
  Transmission Date: 20100115
  Serious: Yes (Hospitalization)
  Sender: FDA-Public Use
  Company Number: DE-SANOFI-SYNTHELABO-F04200900089

PATIENT
  Age: 63 Year
  Sex: Female

DRUGS (12)
  1. DIURETICS [Concomitant]
     Dosage: UNK
     Route: 048
     Dates: end: 20090714
  2. DIURETICS [Concomitant]
     Dosage: DOSE INCREASED
     Route: 048
     Dates: start: 20090715
  3. TRANXILIUM [Concomitant]
     Indication: ANXIETY
     Dosage: UNK
     Route: 048
     Dates: end: 20090714
  4. TRANXILIUM [Concomitant]
     Dosage: DOSE INCREASED
     Route: 048
     Dates: start: 20090715
  5. DEXAMETHASONE TAB [Concomitant]
     Indication: DRUG USE FOR UNKNOWN INDICATION
     Dosage: UNK
     Route: 065
  6. RANITIDINE HCL [Concomitant]
     Indication: DRUG USE FOR UNKNOWN INDICATION
     Dosage: UNK
     Route: 048
  7. FENISTIL [Concomitant]
     Indication: DRUG USE FOR UNKNOWN INDICATION
     Dosage: UNK
     Route: 065
  8. ZOFRAN [Concomitant]
     Indication: DRUG USE FOR UNKNOWN INDICATION
     Dosage: UNK
     Route: 065
  9. DOCETAXEL [Suspect]
     Indication: GASTRIC CANCER
     Route: 041
     Dates: start: 20090714, end: 20090714
  10. FOLINIC ACID [Suspect]
     Indication: GASTRIC CANCER
     Route: 041
     Dates: start: 20090714, end: 20090714
  11. FLUOROURACIL [Suspect]
     Indication: GASTRIC CANCER
     Route: 041
     Dates: start: 20090714, end: 20090714
  12. OXALIPLATIN [Suspect]
     Indication: GASTRIC CANCER
     Route: 041
     Dates: start: 20090714, end: 20090714

REACTIONS (3)
  - ASCITES [None]
  - PLEURAL EFFUSION [None]
  - VOMITING [None]
